FAERS Safety Report 12388498 (Version 2)
Quarter: 2016Q2

REPORT INFORMATION
  Report Type: Other
  Country: US (occurrence: US)
  Receive Date: 20160520
  Receipt Date: 20160602
  Transmission Date: 20160815
  Serious: No
  Sender: FDA-Public Use
  Company Number: US-SHIRE-US201606112

PATIENT
  Age: 7 Year
  Sex: Male
  Weight: 39.2 kg

DRUGS (3)
  1. INTUNIV [Suspect]
     Active Substance: GUANFACINE HYDROCHLORIDE
     Indication: OPPOSITIONAL DEFIANT DISORDER
     Dosage: UNK(1 1/2 OF 2 MG  TABLET), 1X/DAY:QD
     Route: 048
     Dates: start: 2016
  2. INTUNIV [Suspect]
     Active Substance: GUANFACINE HYDROCHLORIDE
     Indication: AFFECTIVE DISORDER
     Dosage: 3 MG, ONE DOSE
     Route: 048
     Dates: start: 20160517
  3. INTUNIV [Suspect]
     Active Substance: GUANFACINE HYDROCHLORIDE
     Indication: ATTENTION DEFICIT/HYPERACTIVITY DISORDER
     Dosage: 2 MG, 1X/DAY:QD
     Route: 048
     Dates: start: 201601, end: 2016

REACTIONS (8)
  - Screaming [Unknown]
  - Drug dose titration not performed [Recovered/Resolved]
  - Incorrect dose administered [Unknown]
  - Aggression [Unknown]
  - Disturbance in social behaviour [Unknown]
  - Adverse event [Unknown]
  - Defiant behaviour [Unknown]
  - Wrong technique in product usage process [Unknown]

NARRATIVE: CASE EVENT DATE: 2016
